FAERS Safety Report 9346093 (Version 1)
Quarter: 2013Q2

REPORT INFORMATION
  Report Type: Spontaneous
  Country: US (occurrence: US)
  Receive Date: 20130613
  Receipt Date: 20130613
  Transmission Date: 20140414
  Serious: No
  Sender: FDA-Public Use
  Company Number: US-009507513-1305USA012527

PATIENT
  Sex: Female

DRUGS (6)
  1. COSOPT PF [Suspect]
     Indication: ROUTINE HEALTH MAINTENANCE
     Dosage: 1 GTT, BID, LEFT EYE
     Route: 047
     Dates: start: 201209
  2. GLYBURIDE (+) METFORMIN HYDROCHLORIDE [Concomitant]
  3. LASIX (FUROSEMIDE) [Concomitant]
  4. PRILOSEC [Concomitant]
     Route: 048
  5. GABAPENTIN [Concomitant]
  6. LANTUS [Concomitant]

REACTIONS (2)
  - Therapeutic response unexpected [Unknown]
  - Eye irritation [Recovered/Resolved]
